FAERS Safety Report 18081893 (Version 1)
Quarter: 2020Q3

REPORT INFORMATION
  Report Type: Spontaneous
  Country: GB (occurrence: GB)
  Receive Date: 20200728
  Receipt Date: 20200728
  Transmission Date: 20201103
  Serious: Yes (Other)
  Sender: FDA-Public Use
  Company Number: GB-B.I. PHARMACEUTICALS,INC./RIDGEFIELD-2020-BI-037327

PATIENT
  Sex: Male

DRUGS (2)
  1. COTRIMOXAZOLE [Concomitant]
     Active Substance: SULFAMETHOXAZOLE\TRIMETHOPRIM
     Indication: ANTIFUNGAL PROPHYLAXIS
     Route: 065
  2. OFEV [Suspect]
     Active Substance: NINTEDANIB
     Indication: HYPERSENSITIVITY PNEUMONITIS
     Route: 048
     Dates: start: 202001

REACTIONS (3)
  - Off label use [Unknown]
  - Lung transplant [Unknown]
  - Therapeutic response unexpected [Unknown]

NARRATIVE: CASE EVENT DATE: 2020
